FAERS Safety Report 15255330 (Version 1)
Quarter: 2018Q3

REPORT INFORMATION
  Report Type: Spontaneous
  Country: US (occurrence: US)
  Receive Date: 20180808
  Receipt Date: 20180808
  Transmission Date: 20181010
  Serious: No
  Sender: FDA-Public Use
  Company Number: US-PFIZER INC-2018316055

PATIENT
  Age: 71 Year
  Sex: Female

DRUGS (4)
  1. TUNA OMEGA 3 [Concomitant]
     Dosage: UNK
     Dates: start: 201508, end: 20180701
  2. LOPERAMIDE [Concomitant]
     Active Substance: LOPERAMIDE
     Dosage: UNK
     Dates: start: 20140925
  3. CARBOPLATIN. [Suspect]
     Active Substance: CARBOPLATIN
     Dosage: UNK
     Route: 042
     Dates: start: 20160307
  4. CALCIUM LACTATE W/MAGNESIUM GLUCONATE [Concomitant]
     Dosage: UNK
     Dates: start: 201508

REACTIONS (1)
  - Drug hypersensitivity [Unknown]

NARRATIVE: CASE EVENT DATE: 20160307
